FAERS Safety Report 10697313 (Version 1)
Quarter: 2015Q1

REPORT INFORMATION
  Report Type: Spontaneous
  Country: IN (occurrence: IN)
  Receive Date: 20150108
  Receipt Date: 20150108
  Transmission Date: 20150721
  Serious: Yes (Death, Other)
  Sender: FDA-Public Use
  Company Number: IN-SUN PHARMACEUTICAL INDUSTRIES LTD-2014SUN03021

PATIENT
  Age: 57 Year
  Sex: Male

DRUGS (1)
  1. CLOPIDOGREL BISULFATE 75MG TABLET [Suspect]
     Active Substance: CLOPIDOGREL BISULFATE
     Indication: PRODUCT USED FOR UNKNOWN INDICATION
     Route: 065

REACTIONS (2)
  - Haemorrhagic infarction [Fatal]
  - Thrombotic thrombocytopenic purpura [Unknown]
